FAERS Safety Report 14583548 (Version 1)
Quarter: 2018Q1

REPORT INFORMATION
  Report Type: Spontaneous
  Country: US (occurrence: US)
  Receive Date: 20180228
  Receipt Date: 20180228
  Transmission Date: 20180509
  Serious: Yes (Disabling)
  Sender: FDA-Public Use
  Company Number: None

PATIENT
  Age: 64 Year
  Sex: Female
  Weight: 85.73 kg

DRUGS (11)
  1. FENOFIBRATE. [Concomitant]
     Active Substance: FENOFIBRATE
  2. AMLODIPINE [Concomitant]
     Active Substance: AMLODIPINE BESYLATE
  3. JARDIANCE [Concomitant]
     Active Substance: EMPAGLIFLOZIN
  4. LAXATIVES [Concomitant]
     Active Substance: UNSPECIFIED INGREDIENT
  5. BYDUREON [Suspect]
     Active Substance: EXENATIDE
     Indication: TYPE 2 DIABETES MELLITUS
     Dates: start: 20171105
  6. SPIRONOLACTONE. [Concomitant]
     Active Substance: SPIRONOLACTONE
  7. BENAZEPRIL [Suspect]
     Active Substance: BENAZEPRIL HYDROCHLORIDE
  8. EZETIMIBE. [Concomitant]
     Active Substance: EZETIMIBE
  9. METOPROLOL. [Concomitant]
     Active Substance: METOPROLOL
  10. GLIPIZEDE [Concomitant]
  11. RANITIDINE. [Concomitant]
     Active Substance: RANITIDINE

REACTIONS (5)
  - Dysgeusia [None]
  - Dyspepsia [None]
  - Constipation [None]
  - Eructation [None]
  - Decreased appetite [None]

NARRATIVE: CASE EVENT DATE: 20171115
